FAERS Safety Report 13089951 (Version 1)
Quarter: 2017Q1

REPORT INFORMATION
  Report Type: Spontaneous
  Country: CA (occurrence: CA)
  Receive Date: 20170105
  Receipt Date: 20170105
  Transmission Date: 20170428
  Serious: Yes (Death, Life-Threatening, Hospitalization, Other)
  Sender: FDA-Public Use
  Company Number: CA-PFIZER INC-8-0000025302

PATIENT
  Age: 11 Year
  Sex: Male

DRUGS (7)
  1. LEUCOVORIN. [Suspect]
     Active Substance: LEUCOVORIN
     Indication: OVERDOSE
     Dosage: 50 MG, UNK
     Route: 037
     Dates: start: 19881216, end: 19881217
  2. HYDROCORTISONE. [Concomitant]
     Active Substance: HYDROCORTISONE
     Dosage: UNK
     Route: 037
     Dates: start: 19881216, end: 19881216
  3. CYTARABINE. [Concomitant]
     Active Substance: CYTARABINE
     Dosage: UNK
     Route: 037
     Dates: start: 19881216, end: 19881216
  4. BACTRIM (CO-TRIMOXAZOLE) [Concomitant]
  5. METHOTREXATE SODIUM. [Suspect]
     Active Substance: METHOTREXATE SODIUM
     Indication: ACUTE LYMPHOCYTIC LEUKAEMIA
     Dosage: 20 MG, UNK
     Route: 037
     Dates: start: 19881216, end: 19881216
  6. LEUCOVORIN. [Suspect]
     Active Substance: LEUCOVORIN
     Dosage: 100 MG, EVERY 4 HOURS
     Route: 042
     Dates: start: 19881216, end: 19881216
  7. CALCIUM LAEVULINATE [Concomitant]
     Dosage: UNK
     Route: 042
     Dates: start: 19881216, end: 19881216

REACTIONS (6)
  - Seizure [Fatal]
  - Pruritus [Unknown]
  - Incorrect route of drug administration [Fatal]
  - Brain oedema [Fatal]
  - Neurotoxicity [Fatal]
  - Accidental overdose [Fatal]

NARRATIVE: CASE EVENT DATE: 19881216
